FAERS Safety Report 4395988-1 (Version None)
Quarter: 2004Q3

REPORT INFORMATION
  Report Type: 
  Country: None (occurrence: None)
  Receive Date: 20040713
  Receipt Date: 20040706
  Transmission Date: 20050211
  Serious: Yes (Hospitalization)
  Sender: FDA-Public Use
  Company Number: US-BRISTOL-MYERS SQUIBB COMPANY-12631941

PATIENT
  Age: 58 Year
  Sex: Female

DRUGS (2)
  1. NEFAZODONE HCL [Suspect]
     Route: 048
  2. GLIPIZIDE [Concomitant]

REACTIONS (1)
  - TORSADE DE POINTES [None]
